FAERS Safety Report 23286785 (Version 1)
Quarter: 2023Q4

REPORT INFORMATION
  Report Type: Spontaneous
  Country: IN (occurrence: IN)
  Receive Date: 20231212
  Receipt Date: 20231212
  Transmission Date: 20240110
  Serious: Yes (Hospitalization)
  Sender: FDA-Public Use
  Company Number: IN-NPI-000016

PATIENT
  Age: 7 Week
  Sex: Male
  Weight: 3 kg

DRUGS (4)
  1. SODIUM BICARBONATE [Suspect]
     Active Substance: SODIUM BICARBONATE
     Indication: Hyperkalaemia
     Route: 065
  2. CALCIUM GLUCONATE [Suspect]
     Active Substance: CALCIUM GLUCONATE
     Indication: Hyperkalaemia
     Route: 042
  3. CALCIUM GLUCONATE [Suspect]
     Active Substance: CALCIUM GLUCONATE
     Indication: Hyperkalaemia
     Route: 042
  4. Insulin Dextrose [Concomitant]
     Indication: Hyperkalaemia
     Route: 065

REACTIONS (4)
  - Pseudohypoaldosteronism [Unknown]
  - Cutaneous calcification [Recovered/Resolved]
  - Iatrogenic injury [Recovered/Resolved]
  - Extravasation [Recovered/Resolved]
